FAERS Safety Report 15453850 (Version 3)
Quarter: 2018Q4

REPORT INFORMATION
  Report Type: Report from Study
  Country: US (occurrence: US)
  Receive Date: 20181001
  Receipt Date: 20181009
  Transmission Date: 20190204
  Serious: Yes (Other)
  Sender: FDA-Public Use
  Company Number: PHEH2018US040342

PATIENT
  Age: 71 Year
  Sex: Female

DRUGS (2)
  1. ZORTRESS [Suspect]
     Active Substance: EVEROLIMUS
     Indication: PRODUCT USED FOR UNKNOWN INDICATION
     Route: 065
  2. ZARXIO [Suspect]
     Active Substance: FILGRASTIM-SNDZ
     Indication: PROPHYLAXIS
     Dosage: UNK
     Route: 065
     Dates: start: 20180921

REACTIONS (3)
  - White blood cell count decreased [Unknown]
  - Lung transplant rejection [Unknown]
  - Lung disorder [Unknown]

NARRATIVE: CASE EVENT DATE: 20180921
